FAERS Safety Report 16720589 (Version 1)
Quarter: 2019Q3

REPORT INFORMATION
  Report Type: Spontaneous
  Country: US (occurrence: US)
  Receive Date: 20190820
  Receipt Date: 20190820
  Transmission Date: 20191005
  Serious: Yes (Disabling, Other)
  Sender: FDA-Public Use
  Company Number: US-REGENERON PHARMACEUTICALS, INC.-2019-47473

PATIENT

DRUGS (2)
  1. EYLEA [Suspect]
     Active Substance: AFLIBERCEPT
     Indication: NEOVASCULAR AGE-RELATED MACULAR DEGENERATION
     Dosage: UNK
  2. EYLEA [Suspect]
     Active Substance: AFLIBERCEPT
     Dosage: UNK, LAST DOSE TO PRIOR EVENT
     Dates: start: 20190801, end: 20190801

REACTIONS (5)
  - Non-infectious endophthalmitis [Unknown]
  - Diabetes mellitus [Unknown]
  - Blindness [Not Recovered/Not Resolved]
  - Vitrectomy [Unknown]
  - Hypertension [Unknown]

NARRATIVE: CASE EVENT DATE: 20190803
